FAERS Safety Report 24050699 (Version 3)
Quarter: 2024Q3

REPORT INFORMATION
  Report Type: Spontaneous
  Country: CO (occurrence: CO)
  Receive Date: 20240704
  Receipt Date: 20240917
  Transmission Date: 20241016
  Serious: No
  Sender: PFIZER
  Company Number: CO-PFIZER INC-202400199831

PATIENT
  Age: 15 Year
  Sex: Male

DRUGS (1)
  1. GENOTROPIN [Suspect]
     Active Substance: SOMATROPIN
     Dosage: UNK

REACTIONS (1)
  - Device information output issue [Unknown]

NARRATIVE: CASE EVENT DATE: 20240510
